FAERS Safety Report 7298864-X (Version None)
Quarter: 2011Q1

REPORT INFORMATION
  Report Type: 
  Country: None (occurrence: None)
  Receive Date: 20110207
  Receipt Date: 20110127
  Transmission Date: 20110831
  Serious: Yes (Hospitalization, Other)
  Sender: FDA-Public Use
  Company Number: DSU-2011-000700

PATIENT
  Sex: Female
  Weight: 80.7403 kg

DRUGS (6)
  1. NAPRELAN (NAPROXEN SODIUM) (NAPROXEN SODIUM) [Concomitant]
  2. BENICAR HCT [Suspect]
     Indication: HYPERTENSION
     Dosage: ,PER ORAL
     Route: 048
     Dates: start: 20110122, end: 20110101
  3. ZANAFLEX (TIZANIDINE HYDROCHLORIDE) (TIZANIDINE HYDROCHLORIDE) [Concomitant]
  4. PAXIL (PAROXETINE HYDROCHLORIDE)(TABLET)(PAROXETINE HYDROCHLORIDE) [Concomitant]
  5. BENICAR [Suspect]
     Indication: HYPERTENSION
     Dosage: 40 MG (40  MQ,QD), PER ORAL
     Route: 048
  6. NUCYNTA (TAPENTADOL) (TABLET) (TAPENTADOL) [Concomitant]

REACTIONS (8)
  - METASTASES TO LIVER [None]
  - HEPATIC NEOPLASM MALIGNANT [None]
  - FEELING ABNORMAL [None]
  - INTESTINAL PERFORATION [None]
  - POLLAKIURIA [None]
  - RECURRENT CANCER [None]
  - DRUG DISPENSING ERROR [None]
  - WRONG DRUG ADMINISTERED [None]
